FAERS Safety Report 7109686-4 (Version None)
Quarter: 2010Q4

REPORT INFORMATION
  Report Type: 
  Country: None (occurrence: None)
  Receive Date: 20101116
  Receipt Date: 20101116
  Transmission Date: 20110411
  Serious: No
  Sender: FDA-Public Use
  Company Number: None

PATIENT
  Age: 56 Year
  Sex: Female
  Weight: 72.5 kg

DRUGS (2)
  1. MULTIHANCE [Suspect]
     Indication: NUCLEAR MAGNETIC RESONANCE IMAGING
     Dosage: IV
     Route: 042
     Dates: start: 20100920, end: 20100920
  2. MULTIHANCE [Suspect]
     Indication: SCAN WITH CONTRAST
     Dosage: IV
     Route: 042
     Dates: start: 20100920, end: 20100920

REACTIONS (2)
  - PRURITUS [None]
  - RASH [None]
